FAERS Safety Report 6866561-8 (Version None)
Quarter: 2010Q3

REPORT INFORMATION
  Report Type: 
  Country: None (occurrence: None)
  Receive Date: 20100722
  Receipt Date: 20100709
  Transmission Date: 20110219
  Serious: Yes (Hospitalization, Other)
  Sender: FDA-Public Use
  Company Number: PHHY2009JP29379

PATIENT
  Sex: Female
  Weight: 38 kg

DRUGS (2)
  1. ZOMETA [Suspect]
     Indication: METASTASES TO BONE
     Dosage: 4MG EVERY THREE WEEKS
     Route: 042
     Dates: start: 20060301, end: 20080701
  2. COMBINATIONS OF ANTINEOPLASTIC AGENTS [Concomitant]
     Indication: METASTASES TO LUNG
     Dosage: UNK
     Dates: start: 20040101

REACTIONS (19)
  - ABSCESS JAW [None]
  - BONE DISORDER [None]
  - BONE SWELLING [None]
  - C-REACTIVE PROTEIN INCREASED [None]
  - GINGIVAL ABSCESS [None]
  - GINGIVAL SWELLING [None]
  - HYPOAESTHESIA [None]
  - JAW FRACTURE [None]
  - JAW OPERATION [None]
  - MASTICATION DISORDER [None]
  - MUSCLE FLAP OPERATION [None]
  - OSTEOMYELITIS [None]
  - OSTEONECROSIS OF JAW [None]
  - OSTEOSCLEROSIS [None]
  - PAIN IN JAW [None]
  - RESORPTION BONE INCREASED [None]
  - SEQUESTRECTOMY [None]
  - TOOTH LOSS [None]
  - VIITH NERVE PARALYSIS [None]
